FAERS Safety Report 7343807-3 (Version None)
Quarter: 2011Q1

REPORT INFORMATION
  Report Type: 
  Country: None (occurrence: None)
  Receive Date: 20110310
  Receipt Date: 20110224
  Transmission Date: 20110831
  Serious: Yes (Hospitalization)
  Sender: FDA-Public Use
  Company Number: CA-ROCHE-711017

PATIENT
  Sex: Female
  Weight: 41.3 kg

DRUGS (25)
  1. TRASTUZUMAB [Suspect]
     Dosage: LAST DOSE PRIOR TO SAE: 30 OCTOBER 2010, CYCLE 7 TREATMENT DELAYED.
     Route: 042
  2. EPIRUBICIN [Suspect]
     Dosage: DOSE REDUCED. CYCLE 7 TREATMENT DELAYED.
     Route: 042
     Dates: start: 20100630
  3. FLUOROURACIL [Suspect]
     Dosage: DOSE REDUCTION AT CYCLE 2
     Route: 042
     Dates: start: 20100630
  4. MAXERAN [Concomitant]
     Dates: start: 20100609, end: 20100609
  5. PERTUZUMAB [Suspect]
     Dosage: LOADING DOSE.
     Route: 042
     Dates: start: 20100609
  6. PERTUZUMAB [Suspect]
     Dosage: LAST DOSE:30 SEPTEMBER 2010. DOSAGE FORM:INFUSION. CYCLE 7 TREATMENT DELAYED.
     Route: 042
  7. OMEGA [Concomitant]
     Dosage: DRUG: OMEGA 3
     Route: 048
     Dates: start: 20070101, end: 20100609
  8. NASONEX [Concomitant]
     Dosage: TOTAL DAILY DOSE: 1 PUFF PRN
     Dates: start: 19950101
  9. ONDANSETRON [Concomitant]
     Dates: start: 20100609, end: 20100722
  10. TRASTUZUMAB [Suspect]
     Dosage: LOADING DOSE, FORM: INFUSION
     Route: 042
     Dates: start: 20100609
  11. FLUOROURACIL [Suspect]
     Dosage: CYCLE 3. CYCLE 7 TREATMENT DELAYED.
     Route: 042
     Dates: start: 20100722
  12. DOCETAXEL [Suspect]
     Dosage: LAST DOSE:30 SEPTEMBER 2010. DOSAGE FORM:INFUSION. CYCLE 7 TREATMENT DELAYED.
     Route: 042
     Dates: start: 20100819
  13. DEXAMETHASONE [Concomitant]
     Dates: start: 20100609, end: 20100609
  14. MULTI-VITAMIN [Concomitant]
     Dates: start: 20000101
  15. TRASTUZUMAB [Suspect]
     Dosage: LAST DOSE:22 JULY 2010. DOSAGE FORM:INFUSION
     Route: 042
  16. VITAMIN B COMPLEX CAP [Concomitant]
     Route: 048
     Dates: start: 20070101, end: 20100609
  17. ADVIL [Concomitant]
     Dosage: DRUG: ADVIL SINUS
     Dates: start: 19950101
  18. EPIRUBICIN [Suspect]
     Route: 042
     Dates: start: 20100609
  19. CYCLOPHOSPHAMIDE [Suspect]
     Dosage: DOSE REDUCTION AT CYCLE 2
     Route: 042
     Dates: start: 20100630
  20. CYCLOPHOSPHAMIDE [Suspect]
     Dosage: CYCLE 7 TREATMENT DELAYED.
     Route: 042
     Dates: start: 20100722
  21. DEXAMETHASONE [Concomitant]
     Dosage: DAY 1 EACH CYCLE
     Dates: start: 20100608
  22. TYLENOL W/ CODEINE NO. 3 [Concomitant]
     Dosage: TDD: PRN
     Dates: start: 20101101
  23. FLUOROURACIL [Suspect]
     Dosage: LAST DOSE:22 JULY 2010
     Route: 042
     Dates: start: 20100609
  24. CYCLOPHOSPHAMIDE [Suspect]
     Dosage: FORM:INFUSION
     Route: 042
     Dates: start: 20100609
  25. REACTINE [Concomitant]
     Dates: start: 19950101

REACTIONS (2)
  - COLITIS [None]
  - URINARY TRACT INFECTION [None]
